FAERS Safety Report 14455600 (Version 1)
Quarter: 2018Q1

REPORT INFORMATION
  Report Type: Report from Study
  Country: IN (occurrence: IN)
  Receive Date: 20180129
  Receipt Date: 20180129
  Transmission Date: 20180509
  Serious: Yes (Other)
  Sender: FDA-Public Use
  Company Number: IN-BAUSCH-BL-2018-002498

PATIENT
  Age: 55 Year
  Sex: Male

DRUGS (4)
  1. ARSENIC TRIOXIDE [Suspect]
     Active Substance: ARSENIC TRIOXIDE
     Indication: COLORECTAL CANCER METASTATIC
     Dosage: CYCLICAL; ON DAYS 1 TO 2
     Route: 065
  2. IRINOTECAN [Suspect]
     Active Substance: IRINOTECAN
     Indication: COLORECTAL CANCER METASTATIC
     Dosage: CYCLICAL; STANDARD DOSES EVERY 2 WEEKS(EVERY OTHER WEEK)
     Route: 065
  3. FLUOROURACIL. [Suspect]
     Active Substance: FLUOROURACIL
     Indication: COLORECTAL CANCER METASTATIC
     Dosage: CYCLICAL; STANDARD DOSES EVERY 2 WEEKS (EVERY OTHER WEEK)
     Route: 065
  4. LEUCOVORIN. [Suspect]
     Active Substance: LEUCOVORIN
     Indication: COLORECTAL CANCER METASTATIC
     Dosage: CYCLICAL; STANDARD DOSES EVERY 2 WEEKS (EVERY OTHER WEEK)
     Route: 065

REACTIONS (1)
  - Electrocardiogram QT prolonged [Unknown]
